FAERS Safety Report 24659577 (Version 3)
Quarter: 2024Q4

REPORT INFORMATION
  Report Type: Report from Study
  Country: EG (occurrence: EG)
  Receive Date: 20241125
  Receipt Date: 20241203
  Transmission Date: 20250115
  Serious: Yes (Disabling)
  Sender: NOVARTIS
  Company Number: EG-002147023-NVSC2024EG223643

PATIENT
  Sex: Female
  Weight: 80 kg

DRUGS (1)
  1. GILENYA [Suspect]
     Active Substance: FINGOLIMOD HYDROCHLORIDE
     Indication: Multiple sclerosis
     Dosage: 0.5 MG, QD (1 CAPSULE) 3 YEARS AGO
     Route: 048
     Dates: end: 202409

REACTIONS (8)
  - Pain [Not Recovered/Not Resolved]
  - Limb discomfort [Not Recovered/Not Resolved]
  - Discomfort [Not Recovered/Not Resolved]
  - Mobility decreased [Not Recovered/Not Resolved]
  - Fall [Not Recovered/Not Resolved]
  - Mental disorder [Not Recovered/Not Resolved]
  - Pain in extremity [Not Recovered/Not Resolved]
  - Fatigue [Not Recovered/Not Resolved]

NARRATIVE: CASE EVENT DATE: 20200101
